FAERS Safety Report 5616675-5 (Version None)
Quarter: 2008Q1

REPORT INFORMATION
  Report Type: 
  Country: None (occurrence: None)
  Receive Date: 20080207
  Receipt Date: 20080130
  Transmission Date: 20080703
  Serious: Yes (Other)
  Sender: FDA-Public Use
  Company Number: PHNU2008DE00789

PATIENT
  Sex: Female

DRUGS (1)
  1. CAFERGOT [Suspect]
     Indication: HEADACHE
     Route: 054

REACTIONS (3)
  - DRUG DEPENDENCE [None]
  - HEADACHE [None]
  - PYREXIA [None]
